FAERS Safety Report 8188041-2 (Version None)
Quarter: 2012Q1

REPORT INFORMATION
  Report Type: 
  Country: None (occurrence: None)
  Receive Date: 20120306
  Receipt Date: 20120221
  Transmission Date: 20120608
  Serious: Yes (Hospitalization)
  Sender: FDA-Public Use
  Company Number: US-WATSON-2012-03384

PATIENT
  Age: 51 Year
  Sex: Male

DRUGS (2)
  1. METHYLPHENIDATE HCL [Suspect]
     Indication: PARKINSONISM
     Route: 065
  2. CARBIDOPA + LEVODOPA [Suspect]

REACTIONS (4)
  - DECREASED APPETITE [None]
  - PARKINSONISM [None]
  - NAUSEA [None]
  - VOMITING [None]
